FAERS Safety Report 10275661 (Version 1)
Quarter: 2014Q3

REPORT INFORMATION
  Report Type: Spontaneous
  Country: US (occurrence: None)
  Receive Date: 20140701
  Receipt Date: 20140701
  Transmission Date: 20150326
  Serious: Yes (Hospitalization, Other)
  Sender: FDA-Public Use
  Company Number: 2010S1000536

PATIENT
  Age: 64 Year
  Sex: Female
  Weight: 90 kg

DRUGS (12)
  1. NPH (ISOPHANE INSULIN) [Concomitant]
  2. PRILOSEC (OMEPRAZOLE) [Concomitant]
     Active Substance: OMEPRAZOLE MAGNESIUM
  3. TICLID (TICLOPIDINE HYDROCHLORIDE) [Concomitant]
  4. PHOSPHO-SODA [Suspect]
     Active Substance: SODIUM PHOSPHATE, DIBASIC\SODIUM PHOSPHATE, MONOBASIC
     Indication: COLONOSCOPY
     Route: 048
     Dates: start: 20070612, end: 20070613
  5. ZETIA [Concomitant]
     Active Substance: EZETIMIBE
  6. FELODIPINE (FELIDIPINE) [Concomitant]
  7. REGLAN [Concomitant]
     Active Substance: METOCLOPRAMIDE HYDROCHLORIDE
  8. REGULAR INSULIN (INSULIN PORCINE) [Concomitant]
  9. FOSAMAX [Concomitant]
     Active Substance: ALENDRONATE SODIUM
  10. PLENDIL (FELODIPINE) [Concomitant]
  11. COZAAR [Concomitant]
     Active Substance: LOSARTAN POTASSIUM
  12. HYDROCHLOROTHIAZIDE (HYDROCHLOROTHIAZIDE) [Concomitant]
     Active Substance: HYDROCHLOROTHIAZIDE

REACTIONS (18)
  - Nausea [None]
  - Vomiting [None]
  - Dyspnoea exertional [None]
  - Anaemia [None]
  - Dizziness [None]
  - Cerebrovascular accident [None]
  - Dehydration [None]
  - Nephrocalcinosis [None]
  - Renal failure chronic [None]
  - Gastritis [None]
  - Hypertonic bladder [None]
  - Diarrhoea [None]
  - Renal failure acute [None]
  - Hepatic steatosis [None]
  - Abdominal distension [None]
  - Impaired gastric emptying [None]
  - Renal tubular necrosis [None]
  - Nocturia [None]

NARRATIVE: CASE EVENT DATE: 20080627
